FAERS Safety Report 10299367 (Version 3)
Quarter: 2015Q3

REPORT INFORMATION
  Report Type: Spontaneous
  Country: US (occurrence: US)
  Receive Date: 20140711
  Receipt Date: 20150918
  Transmission Date: 20151125
  Serious: Yes (Other)
  Sender: FDA-Public Use
  Company Number: US-JNJFOC-20140705829

PATIENT
  Sex: Female

DRUGS (10)
  1. REMICADE [Suspect]
     Active Substance: INFLIXIMAB
     Indication: CROHN^S DISEASE
     Route: 042
     Dates: start: 20121221, end: 20140526
  2. DIFLUCAN [Concomitant]
     Active Substance: FLUCONAZOLE
     Route: 065
  3. SUDAFED [Concomitant]
     Active Substance: PSEUDOEPHEDRINE HYDROCHLORIDE
     Dosage: EVERY FOUR AS NEEDED
     Route: 065
  4. REMICADE [Suspect]
     Active Substance: INFLIXIMAB
     Indication: COLITIS ULCERATIVE
     Dosage: 10 MG/KG
     Route: 042
     Dates: start: 201407, end: 20140707
  5. ZOFRAN [Concomitant]
     Active Substance: ONDANSETRON HYDROCHLORIDE
     Indication: NAUSEA
     Dosage: TAKE 4 MG BY MOUTH EVERY EIGHT HOURS AS NEEDED
     Route: 065
  6. REMICADE [Suspect]
     Active Substance: INFLIXIMAB
     Indication: COLITIS ULCERATIVE
     Route: 042
     Dates: start: 20121221, end: 20140526
  7. REMICADE [Suspect]
     Active Substance: INFLIXIMAB
     Indication: CROHN^S DISEASE
     Dosage: 10 MG/KG
     Route: 042
     Dates: start: 201407, end: 20140707
  8. THERAGRAN [Concomitant]
     Active Substance: VITAMINS
     Route: 065
  9. CULTURELLE [Concomitant]
     Active Substance: LACTOBACILLUS RHAMNOSUS
     Route: 065
  10. PYRIDIUM [Concomitant]
     Active Substance: PHENAZOPYRIDINE
     Indication: PAIN
     Dosage: 95 MG BY MOUTH THREE TIMES A DAY AS NEEDED
     Route: 065

REACTIONS (10)
  - Sinusitis [Unknown]
  - Arthralgia [Unknown]
  - Dysphagia [Unknown]
  - Fungal infection [Unknown]
  - Lupus-like syndrome [Unknown]
  - Irritable bowel syndrome [Unknown]
  - Vulvovaginal candidiasis [Unknown]
  - Crohn^s disease [Unknown]
  - Fatigue [Unknown]
  - Chest discomfort [Unknown]
